FAERS Safety Report 25968663 (Version 1)
Quarter: 2025Q4

REPORT INFORMATION
  Report Type: Spontaneous
  Country: US (occurrence: None)
  Receive Date: 20251027
  Receipt Date: 20251027
  Transmission Date: 20260117
  Serious: Yes (Hospitalization, Other)
  Sender: FDA-CTU
  Company Number: None

PATIENT
  Age: 29 Year
  Sex: Male
  Weight: 73.3 kg

DRUGS (1)
  1. OCRELIZUMAB [Suspect]
     Active Substance: OCRELIZUMAB
     Indication: Multiple sclerosis
     Dosage: 23 ML EVERY 6 MONTHS  ?
     Route: 058
     Dates: start: 20250417

REACTIONS (4)
  - Febrile neutropenia [None]
  - Pneumonitis [None]
  - Candida infection [None]
  - Coronavirus infection [None]

NARRATIVE: CASE EVENT DATE: 20250826
